FAERS Safety Report 8863419 (Version 1)
Quarter: 2012Q4

REPORT INFORMATION
  Report Type: 
  Country: US (occurrence: US)
  Receive Date: 20121024
  Receipt Date: 20121024
  Transmission Date: 20130627
  Serious: No
  Sender: FDA-Public Use
  Company Number: US-AMGEN-USASP2011062341

PATIENT
  Age: 55 Year
  Sex: Female

DRUGS (2)
  1. ENBREL [Suspect]
     Indication: RHEUMATOID ARTHRITIS
     Dosage: 50 mg, qwk
     Dates: start: 20110520, end: 20110901
  2. TREXALL [Concomitant]
     Dosage: UNK

REACTIONS (6)
  - Arthritis [Not Recovered/Not Resolved]
  - Muscle spasms [Recovered/Resolved]
  - Oedema peripheral [Recovered/Resolved]
  - Drug ineffective [Not Recovered/Not Resolved]
  - Drug hypersensitivity [Recovered/Resolved]
  - Urticaria [Recovered/Resolved]
